FAERS Safety Report 9524687 (Version 1)
Quarter: 2013Q3

REPORT INFORMATION
  Report Type: Spontaneous
  Country: US (occurrence: None)
  Receive Date: 20130912
  Receipt Date: 20130912
  Transmission Date: 20140515
  Serious: Yes (Life-Threatening, Other)
  Sender: FDA-Public Use
  Company Number: None

PATIENT
  Age: 65 Year
  Sex: Female

DRUGS (6)
  1. CYMBALTA [Suspect]
     Indication: FIBROMYALGIA
     Dosage: 1 DAILY
     Route: 048
     Dates: end: 20130829
  2. ATENOLOG 25 MG [Concomitant]
  3. LEVOTHYROXINE 137MCG [Concomitant]
  4. LORAZEPAM 1 MG [Concomitant]
  5. LOSARTAN POTASSIUM 100 MG [Concomitant]
  6. ONDANSETRON HCL 4 MG [Concomitant]

REACTIONS (32)
  - Hypertension [None]
  - Nausea [None]
  - Tremor [None]
  - Muscle spasms [None]
  - Irritability [None]
  - Disturbance in attention [None]
  - Palpitations [None]
  - Tachyphrenia [None]
  - Paraesthesia [None]
  - Derealisation [None]
  - Anxiety [None]
  - Diarrhoea [None]
  - Drug withdrawal syndrome [None]
  - Psychomotor skills impaired [None]
  - Vertigo [None]
  - Coordination abnormal [None]
  - Speech disorder [None]
  - Hypersomnia [None]
  - Insomnia [None]
  - Balance disorder [None]
  - Constipation [None]
  - Crying [None]
  - Mood swings [None]
  - Dyspepsia [None]
  - Sleep disorder [None]
  - Nightmare [None]
  - Muscle spasms [None]
  - Tinnitus [None]
  - Depression [None]
  - Restlessness [None]
  - Vomiting [None]
  - Headache [None]
